FAERS Safety Report 5696395-1 (Version None)
Quarter: 2008Q2

REPORT INFORMATION
  Report Type: 
  Country: None (occurrence: None)
  Receive Date: 20080408
  Receipt Date: 20080328
  Transmission Date: 20081010
  Serious: Yes (Hospitalization)
  Sender: FDA-Public Use
  Company Number: IT-RANBAXY-2008RR-14100

PATIENT

DRUGS (1)
  1. PARACETAMOLO RANBAXY 120MG/5ML SOLUZIONE ORALE [Suspect]

REACTIONS (1)
  - HEPATITIS CHOLESTATIC [None]
